FAERS Safety Report 17823591 (Version 1)
Quarter: 2020Q2

REPORT INFORMATION
  Report Type: Spontaneous
  Country: US (occurrence: US)
  Receive Date: 20200525
  Receipt Date: 20200525
  Transmission Date: 20200714
  Serious: Yes (Life-Threatening, Disabling)
  Sender: FDA-Public Use
  Company Number: None

PATIENT
  Age: 31 Year
  Weight: 74.7 kg

DRUGS (1)
  1. DIAZEPAM 10 MG [Suspect]
     Active Substance: DIAZEPAM
     Indication: PANIC DISORDER
     Route: 048
     Dates: start: 20180101

REACTIONS (5)
  - Withdrawal syndrome [None]
  - Paraesthesia [None]
  - Anxiety [None]
  - Mood altered [None]
  - Dyspnoea [None]

NARRATIVE: CASE EVENT DATE: 20180912
